FAERS Safety Report 9664231 (Version 1)
Quarter: 2013Q4

REPORT INFORMATION
  Report Type: Spontaneous
  Country: US (occurrence: US)
  Receive Date: 20131101
  Receipt Date: 20131101
  Transmission Date: 20140711
  Serious: Yes (Other)
  Sender: FDA-Public Use
  Company Number: US-NAPPMUNDI-USA-2013-0107953

PATIENT
  Age: 33 Year
  Sex: Male

DRUGS (1)
  1. OXYCONTIN (NDA 22-272) [Suspect]
     Indication: PAIN
     Dosage: 80 MG, Q4H
     Route: 048
     Dates: start: 2010

REACTIONS (5)
  - Shoulder operation [Unknown]
  - Anger [Unknown]
  - Feelings of worthlessness [Unknown]
  - Inadequate analgesia [Unknown]
  - Pain [Unknown]
